FAERS Safety Report 7187278-9 (Version None)
Quarter: 2010Q4

REPORT INFORMATION
  Report Type: 
  Country: None (occurrence: None)
  Receive Date: 20101222
  Receipt Date: 20101214
  Transmission Date: 20110411
  Serious: Yes (Hospitalization, Other)
  Sender: FDA-Public Use
  Company Number: BE-ABBOTT-10P-013-0691991-00

PATIENT
  Sex: Male
  Weight: 57 kg

DRUGS (2)
  1. HUMIRA [Suspect]
     Indication: CROHN'S DISEASE
     Route: 058
     Dates: start: 20101112, end: 20101112
  2. HUMIRA [Suspect]
     Dates: start: 20101126, end: 20101126

REACTIONS (3)
  - LYMPHADENOPATHY MEDIASTINAL [None]
  - PYREXIA [None]
  - TUBERCULIN TEST POSITIVE [None]
